FAERS Safety Report 25798708 (Version 1)
Quarter: 2025Q3

REPORT INFORMATION
  Report Type: Report from Study
  Country: US (occurrence: US)
  Receive Date: 20250913
  Receipt Date: 20250913
  Transmission Date: 20251021
  Serious: Yes (Other)
  Sender: CHIESI
  Company Number: US-CHIESI-2025CHF03308

PATIENT
  Sex: Male
  Weight: 17.998 kg

DRUGS (1)
  1. BIRCH BARK\HERBALS [Suspect]
     Active Substance: BIRCH BARK\HERBALS
     Indication: Epidermolysis bullosa
     Route: 061
     Dates: start: 20240723

REACTIONS (6)
  - Wound infection pseudomonas [Recovering/Resolving]
  - Product administration interrupted [Recovering/Resolving]
  - Drug ineffective [Not Recovered/Not Resolved]
  - Wound complication [Recovering/Resolving]
  - Neck injury [Recovering/Resolving]
  - Product complaint [Not Recovered/Not Resolved]

NARRATIVE: CASE EVENT DATE: 20250101
